FAERS Safety Report 11625658 (Version 2)
Quarter: 2015Q4

REPORT INFORMATION
  Report Type: Spontaneous
  Country: IT (occurrence: IT)
  Receive Date: 20151013
  Receipt Date: 20151020
  Transmission Date: 20160304
  Serious: Yes (Hospitalization)
  Sender: FDA-Public Use
  Company Number: IT-PFIZER INC-2015338284

PATIENT
  Age: 26 Year
  Sex: Female

DRUGS (3)
  1. XANAX [Suspect]
     Active Substance: ALPRAZOLAM
     Dosage: 40 ML, DAILY
     Route: 048
     Dates: start: 20150930, end: 20150930
  2. XANAX [Suspect]
     Active Substance: ALPRAZOLAM
     Dosage: 7 MG, DAILY
     Route: 048
     Dates: start: 20150930, end: 20150930
  3. CITALOPRAM [Concomitant]
     Active Substance: CITALOPRAM HYDROBROMIDE
     Dosage: 20 MG, DAILY IN THE EVENING

REACTIONS (2)
  - Sopor [Recovering/Resolving]
  - Drug abuse [Recovering/Resolving]

NARRATIVE: CASE EVENT DATE: 20150930
